FAERS Safety Report 25949840 (Version 2)
Quarter: 2025Q4

REPORT INFORMATION
  Report Type: Spontaneous
  Country: US (occurrence: US)
  Receive Date: 20251022
  Receipt Date: 20251023
  Transmission Date: 20260117
  Serious: No
  Sender: CALLIDITAS THERAPEUTICS AB
  Company Number: US-Calliditas-2025CAL02362

PATIENT
  Age: 43 Year
  Sex: Female

DRUGS (8)
  1. TARPEYO [Suspect]
     Active Substance: BUDESONIDE
     Indication: IgA nephropathy
     Route: 048
     Dates: start: 20250719
  2. ASTELIN [Concomitant]
     Active Substance: AZELASTINE HYDROCHLORIDE
  3. CARBOXYMETHYL [Concomitant]
  4. COZAAR [Concomitant]
     Active Substance: LOSARTAN POTASSIUM
  5. JARDIANCE [Concomitant]
     Active Substance: EMPAGLIFLOZIN
  6. PEPCID [Concomitant]
     Active Substance: FAMOTIDINE
  7. ZANAFLEX [Concomitant]
     Active Substance: TIZANIDINE HYDROCHLORIDE
  8. REFRESH [CARMELLOSE SODIUM] [Concomitant]

REACTIONS (7)
  - Dyspepsia [Recovered/Resolved]
  - Abdominal discomfort [Recovered/Resolved]
  - Abdominal distension [Recovered/Resolved]
  - Muscular weakness [Not Recovered/Not Resolved]
  - Muscle fatigue [Not Recovered/Not Resolved]
  - Swelling [Recovered/Resolved]
  - Intentional underdose [Recovering/Resolving]

NARRATIVE: CASE EVENT DATE: 20250806
